FAERS Safety Report 23398519 (Version 2)
Quarter: 2024Q2

REPORT INFORMATION
  Report Type: Report from Study
  Country: US (occurrence: US)
  Receive Date: 20240112
  Receipt Date: 20240424
  Transmission Date: 20240716
  Serious: No
  Sender: FDA-Public Use
  Company Number: US-AstraZeneca-CH-00540515A

PATIENT
  Sex: Male

DRUGS (5)
  1. KANUMA [Suspect]
     Active Substance: SEBELIPASE ALFA
     Indication: Product used for unknown indication
     Dosage: 2 MILLIGRAM/KILOGRAM
     Route: 041
  2. KANUMA [Suspect]
     Active Substance: SEBELIPASE ALFA
     Dosage: 1 MILLIGRAM/KILOGRAM
     Route: 041
     Dates: start: 2020
  3. KANUMA [Suspect]
     Active Substance: SEBELIPASE ALFA
     Dosage: 2 MILLIGRAM/KILOGRAM
     Route: 041
  4. ROSUVASTATIN [Suspect]
     Active Substance: ROSUVASTATIN
     Indication: Product used for unknown indication
     Dosage: UNK
     Route: 065
  5. HYOSCYAMINE [Suspect]
     Active Substance: HYOSCYAMINE
     Indication: Product used for unknown indication
     Dosage: UNK
     Route: 065

REACTIONS (5)
  - Irritable bowel syndrome [Not Recovered/Not Resolved]
  - Blood cholesterol increased [Not Recovered/Not Resolved]
  - Protein total increased [Recovered/Resolved with Sequelae]
  - Myalgia [Unknown]
  - Fatigue [Unknown]
